FAERS Safety Report 9925469 (Version 1)
Quarter: 2014Q1

REPORT INFORMATION
  Report Type: Report from Study
  Country: US (occurrence: US)
  Receive Date: 20140226
  Receipt Date: 20140226
  Transmission Date: 20141002
  Serious: No
  Sender: FDA-Public Use
  Company Number: US-ALEXION-A201400537

PATIENT
  Sex: 0

DRUGS (4)
  1. SOLIRIS [Suspect]
     Indication: PAROXYSMAL NOCTURNAL HAEMOGLOBINURIA
     Dosage: 900MG EVERY 14 DAYS
     Route: 042
     Dates: start: 20100721
  2. MULTIVITAMIN                       /00097801/ [Concomitant]
     Dosage: 1 TAB DAILY
     Route: 048
     Dates: start: 19910101
  3. TYLENOL                            /00020001/ [Concomitant]
     Indication: PAIN
     Dosage: UNK PRN
     Route: 048
     Dates: start: 20080601
  4. COUMADIN                           /00014802/ [Concomitant]
     Indication: ANTICOAGULANT THERAPY
     Dosage: 10 M-W-F, 12 T-TH
     Dates: start: 20091101

REACTIONS (2)
  - Blood potassium decreased [Not Recovered/Not Resolved]
  - Iron overload [Not Recovered/Not Resolved]
